FAERS Safety Report 8873161 (Version 1)
Quarter: 2012Q4

REPORT INFORMATION
  Report Type: 
  Country: US (occurrence: US)
  Receive Date: 20121026
  Receipt Date: 20121026
  Transmission Date: 20130627
  Serious: No
  Sender: FDA-Public Use
  Company Number: US-AMGEN-USASP2012050630

PATIENT
  Age: 64 Year
  Sex: Female

DRUGS (8)
  1. ENBREL [Suspect]
     Indication: PRODUCT USED FOR UNKNOWN INDICATION
     Dosage: 50 mg, qwk
     Route: 058
  2. CELEBREX [Concomitant]
     Dosage: 100 mg, UNK
  3. METHOTREXATE [Concomitant]
     Dosage: 2.5 mg, UNK
  4. FOLIC ACID [Concomitant]
     Dosage: 1 mg, UNK
  5. PREMARIN [Concomitant]
     Dosage: 0.9 mg, UNK
  6. PROGESTERONE [Concomitant]
     Dosage: 50 mg/ml, UNK
  7. CALCIUM [Concomitant]
     Dosage: 500 mg, UNK
  8. VITAMIN D3 [Concomitant]
     Dosage: UNK

REACTIONS (1)
  - Injection site swelling [Unknown]
